FAERS Safety Report 12839205 (Version 1)
Quarter: 2016Q4

REPORT INFORMATION
  Report Type: Spontaneous
  Country: US (occurrence: US)
  Receive Date: 20161012
  Receipt Date: 20161012
  Transmission Date: 20170207
  Serious: No
  Sender: FDA-Public Use
  Company Number: US-PFIZER INC-2016473509

PATIENT
  Sex: Female

DRUGS (1)
  1. GABAPENTIN. [Suspect]
     Active Substance: GABAPENTIN
     Dosage: 100 MG, UNK (1 TO 2 CAPSULES UP TO 4 TIMES DAILY)

REACTIONS (3)
  - Balance disorder [Unknown]
  - Coordination abnormal [Unknown]
  - Anger [Unknown]
